FAERS Safety Report 10752129 (Version 1)
Quarter: 2015Q1

REPORT INFORMATION
  Report Type: Spontaneous
  Country: TR (occurrence: None)
  Receive Date: 20150128
  Receipt Date: 20150128
  Transmission Date: 20150721
  Serious: Yes (Other)
  Sender: FDA-Public Use
  Company Number: 2015JUB00017

PATIENT
  Age: 24 Year
  Sex: Female

DRUGS (2)
  1. UNSPECIFIED CORTICOSTEROID (UNKNOWN) [Concomitant]
  2. MYCOPHENOLATE MOFETIL (MYCOPHENOLATE MOFETIL) [Suspect]
     Active Substance: MYCOPHENOLATE MOFETIL
     Indication: SYSTEMIC LUPUS ERYTHEMATOSUS
     Route: 048

REACTIONS (2)
  - Anaphylactic reaction [None]
  - Type IV hypersensitivity reaction [None]
